FAERS Safety Report 9258739 (Version 1)
Quarter: 2013Q2

REPORT INFORMATION
  Report Type: Spontaneous
  Country: GB (occurrence: GB)
  Receive Date: 20130426
  Receipt Date: 20130426
  Transmission Date: 20140414
  Serious: Yes (Hospitalization, Other)
  Sender: FDA-Public Use
  Company Number: GB-JNJFOC-20130411011

PATIENT
  Sex: Male

DRUGS (2)
  1. ZYTIGA [Suspect]
     Indication: PROSTATE CANCER
     Route: 048
  2. PREDNISOLONE [Suspect]
     Indication: PROSTATE CANCER
     Route: 048

REACTIONS (2)
  - Bone pain [Unknown]
  - Hospitalisation [Unknown]
